FAERS Safety Report 6398434-1 (Version None)
Quarter: 2009Q4

REPORT INFORMATION
  Report Type: 
  Country: None (occurrence: None)
  Receive Date: 20091013
  Receipt Date: 20091005
  Transmission Date: 20100525
  Serious: Yes (Congenital Anomaly)
  Sender: FDA-Public Use
  Company Number: A0679466A

PATIENT
  Sex: Male

DRUGS (11)
  1. PAXIL [Suspect]
     Indication: DEPRESSION
     Dosage: 20MG PER DAY
     Dates: start: 19930101, end: 20010101
  2. XOPENEX [Concomitant]
  3. VITAMIN TAB [Concomitant]
  4. FLOVENT [Concomitant]
  5. INSULIN [Concomitant]
  6. ZYRTEC [Concomitant]
  7. D-TUSSIN [Concomitant]
  8. TYLENOL (CAPLET) [Concomitant]
  9. VOLMAX [Concomitant]
  10. ZOCOR [Concomitant]
  11. QVAR 40 [Concomitant]

REACTIONS (4)
  - DIAPHRAGMATIC APLASIA [None]
  - DIAPHRAGMATIC HERNIA [None]
  - DRUG EXPOSURE DURING PREGNANCY [None]
  - PULMONARY APLASIA [None]
